FAERS Safety Report 11429971 (Version 1)
Quarter: 2015Q3

REPORT INFORMATION
  Report Type: Spontaneous
  Country: ZA (occurrence: ZA)
  Receive Date: 20150828
  Receipt Date: 20150828
  Transmission Date: 20151125
  Serious: Yes (Death, Other)
  Sender: FDA-Public Use
  Company Number: ZA-JNJFOC-20150821798

PATIENT
  Age: 72 Year
  Sex: Male

DRUGS (6)
  1. ATORVASTATIN [Concomitant]
     Active Substance: ATORVASTATIN
     Route: 065
  2. CIPRALEX [Concomitant]
     Active Substance: ESCITALOPRAM OXALATE
     Route: 065
  3. CARDICOR [Concomitant]
     Active Substance: BISOPROLOL
     Route: 065
  4. XARELTO [Suspect]
     Active Substance: RIVAROXABAN
     Indication: PRODUCT USED FOR UNKNOWN INDICATION
     Route: 048
  5. TAMBOCOR [Concomitant]
     Active Substance: FLECAINIDE ACETATE
     Route: 065
  6. XALATAN [Concomitant]
     Active Substance: LATANOPROST
     Route: 065

REACTIONS (4)
  - Atrial fibrillation [Unknown]
  - Palpitations [Unknown]
  - Cerebral haemorrhage [Fatal]
  - Depressed mood [Unknown]
